FAERS Safety Report 6162477-3 (Version None)
Quarter: 2009Q2

REPORT INFORMATION
  Report Type: 
  Country: None (occurrence: None)
  Receive Date: 20090421
  Receipt Date: 20090415
  Transmission Date: 20091009
  Serious: Yes (Other)
  Sender: FDA-Public Use
  Company Number: PHHY2009CA10531

PATIENT
  Sex: Female

DRUGS (10)
  1. ACLASTA [Suspect]
     Indication: OSTEOPOROSIS
     Dosage: 5 MG YEARLY
     Route: 042
     Dates: start: 20090223
  2. PREDNISONE [Concomitant]
     Dosage: 10 MG, QD
  3. PREDNISONE [Concomitant]
     Dosage: 15 MG, QD
  4. LOSEC [Concomitant]
     Dosage: 20 MG, QD
  5. MICARDIS [Concomitant]
     Dosage: 80 MG, QD
  6. DILTIAZEM [Concomitant]
     Dosage: 240 MG, QD
  7. SPIRONOLACTONE [Concomitant]
     Dosage: 200 MG, QD
  8. VITAMIN D [Concomitant]
     Dosage: 1000 IU
  9. CALCIUM [Concomitant]
     Dosage: 1250 MG, QD
  10. IMOVANE [Concomitant]
     Dosage: 75 MG

REACTIONS (10)
  - ABNORMAL DREAMS [None]
  - ARTHRALGIA [None]
  - CONCOMITANT DISEASE AGGRAVATED [None]
  - GAIT DISTURBANCE [None]
  - HEADACHE [None]
  - NAUSEA [None]
  - OEDEMA PERIPHERAL [None]
  - PAIN IN EXTREMITY [None]
  - RHEUMATOID ARTHRITIS [None]
  - WALKING AID USER [None]
